FAERS Safety Report 4277812-0 (Version None)
Quarter: 2004Q1

REPORT INFORMATION
  Report Type: 
  Country: None (occurrence: None)
  Receive Date: 20040121
  Receipt Date: 20040109
  Transmission Date: 20041129
  Serious: Yes (Other)
  Sender: FDA-Public Use
  Company Number: 2004193960DE

PATIENT
  Sex: Female

DRUGS (1)
  1. BEXTRA [Suspect]
     Indication: BACK PAIN
     Dosage: 20 MG, TWO OR THREE TIMES DAILY, ORAL
     Route: 048
     Dates: start: 20031223, end: 20040105

REACTIONS (2)
  - EXANTHEM [None]
  - HYPERSENSITIVITY [None]
